FAERS Safety Report 18198044 (Version 14)
Quarter: 2022Q3

REPORT INFORMATION
  Report Type: Report from Study
  Country: CA (occurrence: None)
  Receive Date: 20200826
  Receipt Date: 20220808
  Transmission Date: 20221027
  Serious: Yes (Life-Threatening)
  Sender: FDA-Public Use
  Company Number: CA-EISAI MEDICAL RESEARCH-EC-2020-079337

PATIENT
  Age: 68 Year
  Sex: Female
  Weight: 50.3 kg

DRUGS (13)
  1. LENVATINIB [Suspect]
     Active Substance: LENVATINIB
     Indication: Endometrial cancer
     Route: 048
     Dates: start: 20200728, end: 20200817
  2. LENVATINIB [Suspect]
     Active Substance: LENVATINIB
     Dosage: STARTING DOSE AT: 14 MG FLUCTUATED DOSAGE
     Route: 048
     Dates: start: 20200826
  3. PEMBROLIZUMAB [Suspect]
     Active Substance: PEMBROLIZUMAB
     Indication: Endometrial cancer
     Route: 041
     Dates: start: 20200728, end: 20200728
  4. PEMBROLIZUMAB [Suspect]
     Active Substance: PEMBROLIZUMAB
     Route: 041
     Dates: start: 20200818, end: 20200818
  5. PEMBROLIZUMAB [Suspect]
     Active Substance: PEMBROLIZUMAB
     Route: 041
     Dates: start: 20200911
  6. LEVOTHYROXINE SODIUM [Concomitant]
     Active Substance: LEVOTHYROXINE SODIUM
     Dates: start: 198301, end: 20201026
  7. ROSUVASTATIN [Concomitant]
     Active Substance: ROSUVASTATIN
     Dates: start: 200901
  8. FERROUS GLUCONATE [Concomitant]
     Active Substance: FERROUS GLUCONATE
     Dates: start: 202006, end: 20200831
  9. CLEARLAX [Concomitant]
     Active Substance: POLYETHYLENE GLYCOL 3350
     Dates: start: 20200330, end: 20201222
  10. DIPHENHYDRAMINE HYDROCHLORIDE;HYDROCORTISONE;NYSTATIN [Concomitant]
     Dates: start: 20200731, end: 20200805
  11. RAMIPRIL [Concomitant]
     Active Substance: RAMIPRIL
     Dates: start: 20200808, end: 20200810
  12. RAMIPRIL [Concomitant]
     Active Substance: RAMIPRIL
     Dates: start: 20200811, end: 20200819
  13. GRAVOL [Concomitant]
     Active Substance: DIMENHYDRINATE
     Dates: start: 20200817, end: 20200930

REACTIONS (1)
  - Electrocardiogram QT prolonged [Recovered/Resolved]

NARRATIVE: CASE EVENT DATE: 20200818
